FAERS Safety Report 7070324-0 (Version None)
Quarter: 2010Q4

REPORT INFORMATION
  Report Type: 
  Country: None (occurrence: None)
  Receive Date: 20101028
  Receipt Date: 20101017
  Transmission Date: 20110411
  Serious: Yes (Hospitalization)
  Sender: FDA-Public Use
  Company Number: US-MYLANLABS-2010S1019251

PATIENT
  Age: 68 Year
  Sex: Female

DRUGS (2)
  1. MERCAPTOPURINE [Suspect]
     Route: 065
  2. PREDNISONE [Concomitant]
     Indication: COLITIS ULCERATIVE
     Route: 065

REACTIONS (1)
  - LEUKOCYTOCLASTIC VASCULITIS [None]
